FAERS Safety Report 4713810-8 (Version None)
Quarter: 2005Q3

REPORT INFORMATION
  Report Type: 
  Country: None (occurrence: None)
  Receive Date: 20050713
  Receipt Date: 20050419
  Transmission Date: 20060218
  Serious: Yes (Death, Other)
  Sender: FDA-Public Use
  Company Number: US-MERCK-0504USA03725

PATIENT
  Age: 66 Year
  Sex: Male
  Weight: 70 kg

DRUGS (8)
  1. VIOXX [Suspect]
     Indication: ARTHRITIS
     Route: 048
     Dates: start: 20030402, end: 20030404
  2. NORTRIPTYLINE [Concomitant]
     Indication: ANXIETY
     Route: 065
     Dates: end: 20030404
  3. NORTRIPTYLINE [Concomitant]
     Indication: DEPRESSION
     Route: 065
     Dates: end: 20030404
  4. TRAZODONE HYDROCHLORIDE [Concomitant]
     Indication: ANXIETY
     Route: 065
     Dates: end: 20030404
  5. TRAZODONE HYDROCHLORIDE [Concomitant]
     Indication: DEPRESSION
     Route: 065
     Dates: end: 20030404
  6. MELOXICAM [Concomitant]
     Route: 065
     Dates: end: 20030404
  7. IBUPROFEN [Concomitant]
     Indication: PAIN
     Route: 065
     Dates: end: 20030404
  8. TYLENOL [Concomitant]
     Indication: PAIN
     Route: 065
     Dates: end: 20030404

REACTIONS (2)
  - DEATH [None]
  - MYOCARDIAL INFARCTION [None]
